FAERS Safety Report 4415813-X (Version None)
Quarter: 2004Q3

REPORT INFORMATION
  Report Type: 
  Country: None (occurrence: None)
  Receive Date: 20040729
  Receipt Date: 20040719
  Transmission Date: 20050211
  Serious: Yes (Other)
  Sender: FDA-Public Use
  Company Number: 2004220422US

PATIENT
  Age: 37 Year
  Sex: Female

DRUGS (7)
  1. DEPO-PROVERA [Suspect]
     Indication: CONTRACEPTION
     Dosage: 150 MG, 1ST INJ., INTRAMUSCULAR; SEE IMAGE
     Route: 030
     Dates: start: 20010101, end: 20010101
  2. DEPO-PROVERA [Suspect]
     Indication: CONTRACEPTION
     Dosage: 150 MG, 1ST INJ., INTRAMUSCULAR; SEE IMAGE
     Route: 030
     Dates: start: 20030416, end: 20030416
  3. DEPO-PROVERA [Suspect]
     Indication: CONTRACEPTION
     Dosage: 150 MG, 1ST INJ., INTRAMUSCULAR; SEE IMAGE
     Route: 030
     Dates: start: 20030707, end: 20030707
  4. DEPO-PROVERA [Suspect]
     Indication: CONTRACEPTION
     Dosage: 150 MG, 1ST INJ., INTRAMUSCULAR; SEE IMAGE
     Route: 030
     Dates: start: 20030925, end: 20030925
  5. DEPO-PROVERA [Suspect]
     Indication: CONTRACEPTION
     Dosage: 150 MG, 1ST INJ., INTRAMUSCULAR; SEE IMAGE
     Route: 030
     Dates: start: 20031211, end: 20031211
  6. DEPO-PROVERA [Suspect]
     Indication: CONTRACEPTION
     Dosage: 150 MG, 1ST INJ., INTRAMUSCULAR; SEE IMAGE
     Route: 030
     Dates: start: 20040308, end: 20040308
  7. DEPO-PROVERA [Suspect]
     Indication: CONTRACEPTION
     Dosage: 150 MG, 1ST INJ., INTRAMUSCULAR; SEE IMAGE
     Route: 030
     Dates: start: 20040524, end: 20040524

REACTIONS (3)
  - ABORTION SPONTANEOUS [None]
  - PREGNANCY WITH INJECTABLE CONTRACEPTIVE [None]
  - UNINTENDED PREGNANCY [None]
